FAERS Safety Report 21697669 (Version 1)
Quarter: 2022Q4

REPORT INFORMATION
  Report Type: Report from Study
  Country: US (occurrence: US)
  Receive Date: 20221208
  Receipt Date: 20221208
  Transmission Date: 20230113
  Serious: No
  Sender: FDA-Public Use
  Company Number: US-BIOVITRUM-2022US11249

PATIENT
  Sex: Female

DRUGS (3)
  1. SYNAGIS [Suspect]
     Active Substance: PALIVIZUMAB
     Indication: Antiviral prophylaxis
     Dosage: 50MG/0.5ML
  2. SYNAGIS [Suspect]
     Active Substance: PALIVIZUMAB
  3. TYLENOL INFANTS PAIN+FEVE [Concomitant]

REACTIONS (2)
  - Diarrhoea [Unknown]
  - Injection site irritation [Unknown]
